FAERS Safety Report 21866116 (Version 1)
Quarter: 2023Q1

REPORT INFORMATION
  Report Type: Report from Study
  Country: MA (occurrence: MA)
  Receive Date: 20230116
  Receipt Date: 20230116
  Transmission Date: 20230418
  Serious: Yes (Other)
  Sender: FDA-Public Use
  Company Number: MA-002147023-NVSC2022MA276245

PATIENT
  Age: 35 Year
  Sex: Female

DRUGS (1)
  1. KISQALI [Suspect]
     Active Substance: RIBOCICLIB
     Indication: Breast cancer
     Dosage: 200 MG, TID
     Route: 048
     Dates: start: 20220608

REACTIONS (5)
  - Metastases to spine [Unknown]
  - Breast pain [Recovered/Resolved]
  - Breast mass [Unknown]
  - Scar [Unknown]
  - Breast cyst rupture [Unknown]

NARRATIVE: CASE EVENT DATE: 20221201
